FAERS Safety Report 24291514 (Version 1)
Quarter: 2024Q3

REPORT INFORMATION
  Report Type: Spontaneous
  Country: US (occurrence: None)
  Receive Date: 20240906
  Receipt Date: 20240906
  Transmission Date: 20241016
  Serious: No
  Sender: DOMPE FARMACEUTICI
  Company Number: US-FARMAPROD-202309-2733

PATIENT
  Age: 79 Year
  Sex: Female

DRUGS (6)
  1. OXERVATE [Suspect]
     Active Substance: CENEGERMIN-BKBJ
     Indication: Neurotrophic keratopathy
     Route: 047
     Dates: start: 20230908
  2. UNSPECIFIED INGREDIENT [Concomitant]
     Active Substance: UNSPECIFIED INGREDIENT
  3. ESTRACE [Concomitant]
     Active Substance: ESTRADIOL
  4. VITAMINS [Concomitant]
     Active Substance: VITAMINS
  5. LUTEIN [Concomitant]
     Active Substance: LUTEIN
  6. AUTOLOGOUS HUMAN CORNEAL EPITHELIAL CELLS [Concomitant]

REACTIONS (8)
  - Accidental overdose [Unknown]
  - Headache [Unknown]
  - Facial pain [Unknown]
  - Rhinalgia [Unknown]
  - Fatigue [Unknown]
  - Eye pain [Not Recovered/Not Resolved]
  - Dizziness [Unknown]
  - Asthenia [Unknown]

NARRATIVE: CASE EVENT DATE: 20230908
